FAERS Safety Report 8607725-2 (Version None)
Quarter: 2012Q3

REPORT INFORMATION
  Report Type: 
  Country: None (occurrence: None)
  Receive Date: 20120821
  Receipt Date: 20120814
  Transmission Date: 20120928
  Serious: Yes (Other)
  Sender: FDA-Public Use
  Company Number: VE-PFIZER INC-2012173723

PATIENT
  Age: 52 Year
  Sex: Female

DRUGS (2)
  1. NEURONTIN [Concomitant]
     Indication: PAIN
     Dosage: 800 MG, 1X/DAY
     Route: 048
     Dates: start: 20120701
  2. LYRICA [Suspect]
     Indication: PAIN
     Dosage: 75 MG, 1X/DAY
     Route: 048
     Dates: start: 20120501

REACTIONS (2)
  - INTERVERTEBRAL DISC PROTRUSION [None]
  - DIABETES MELLITUS [None]
